FAERS Safety Report 16110942 (Version 7)
Quarter: 2024Q3

REPORT INFORMATION
  Report Type: Spontaneous
  Country: PT (occurrence: PT)
  Receive Date: 20190325
  Receipt Date: 20240717
  Transmission Date: 20241017
  Serious: Yes (Hospitalization, Disabling, Other)
  Sender: AUROBINDO
  Company Number: PT-AUROBINDO-AUR-APL-2019-016820

PATIENT
  Age: 79 Year
  Sex: Male
  Weight: 75 kg

DRUGS (6)
  1. AMOXICILLIN\CLAVULANIC ACID [Suspect]
     Active Substance: AMOXICILLIN\CLAVULANIC ACID
     Indication: Respiratory tract infection
     Dosage: UNK, UNK (SEVERAL CYCLE)
     Route: 065
  2. PIPERACILLIN AND TAZOBACTAM [Suspect]
     Active Substance: PIPERACILLIN SODIUM\TAZOBACTAM SODIUM
     Indication: Respiratory tract infection
     Dosage: UNK, UNK (SEVERAL CYCLE)
     Route: 065
  3. MEROPENEM [Suspect]
     Active Substance: MEROPENEM
     Indication: Respiratory tract infection
     Dosage: UNK, UNK (SEVERAL CYCLE)
     Route: 065
  4. LINEZOLID [Suspect]
     Active Substance: LINEZOLID
     Indication: Respiratory tract infection
     Dosage: UNK, UNK (SEVERAL CYCLE)
     Route: 065
  5. ENOXAPARIN [Concomitant]
     Active Substance: ENOXAPARIN
     Indication: Atherosclerosis prophylaxis
     Dosage: 40 MILLIGRAM, ONCE A DAY
     Route: 065
  6. ENOXAPARIN [Concomitant]
     Active Substance: ENOXAPARIN
     Indication: Atrial fibrillation
     Dosage: 80 MILLIGRAM, ONCE A DAY, 40 MG, BID (EVERY 12 HOURS)
     Route: 065

REACTIONS (16)
  - Renal injury [Not Recovered/Not Resolved]
  - Renal tubular necrosis [Not Recovered/Not Resolved]
  - Acute kidney injury [Unknown]
  - Blood creatinine increased [Unknown]
  - Proteinuria [Unknown]
  - Leukocyturia [Unknown]
  - Haematuria [Unknown]
  - Eosinophil count increased [Unknown]
  - Atheroembolism [Unknown]
  - Renal embolism [Unknown]
  - Renal failure [Unknown]
  - Renal impairment [Not Recovered/Not Resolved]
  - Pleural effusion [Unknown]
  - Atrial fibrillation [Unknown]
  - Hemiparesis [Unknown]
  - Eosinophilia [Unknown]
